FAERS Safety Report 8800410 (Version 1)
Quarter: 2012Q4

REPORT INFORMATION
  Report Type: 
  Country: US (occurrence: US)
  Receive Date: 20120921
  Receipt Date: 20120921
  Transmission Date: 20130627
  Serious: Yes (Other)
  Sender: FDA-Public Use
  Company Number: US-BAYER-2012-097701

PATIENT
  Age: 72 Year
  Sex: Female
  Weight: 52.15 kg

DRUGS (2)
  1. PHILLIPS^ MILK OF [Suspect]
     Indication: CONSTIPATION
     Dosage: 3 DF, took it only one time
     Route: 048
     Dates: start: 201204, end: 201204
  2. COZAAR [Concomitant]
     Dosage: 50 mg, UNK

REACTIONS (2)
  - Haemorrhoidal haemorrhage [Recovered/Resolved]
  - Abdominal pain [Recovered/Resolved]
